FAERS Safety Report 11247876 (Version 1)
Quarter: 2015Q3

REPORT INFORMATION
  Report Type: Spontaneous
  Country: AT (occurrence: AT)
  Receive Date: 20150708
  Receipt Date: 20150708
  Transmission Date: 20151125
  Serious: Yes (Other)
  Sender: FDA-Public Use
  Company Number: AT-TEVA-575411ISR

PATIENT
  Sex: Female

DRUGS (1)
  1. TAMOXIFEN ^RATIOPHARM^ 20 MG - TABLETS 30 UNITS [Suspect]
     Active Substance: TAMOXIFEN CITRATE
     Indication: BREAST CANCER
     Dosage: 20 MILLIGRAM DAILY;
     Dates: start: 2008

REACTIONS (3)
  - Ocular hypertension [Unknown]
  - Eye symptom [Unknown]
  - Dry eye [Unknown]
